FAERS Safety Report 6061525-9 (Version None)
Quarter: 2009Q1

REPORT INFORMATION
  Report Type: 
  Country: None (occurrence: None)
  Receive Date: 20090202
  Receipt Date: 20090128
  Transmission Date: 20090719
  Serious: Yes (Death, Hospitalization)
  Sender: FDA-Public Use
  Company Number: FR-AVENTIS-200910392EU

PATIENT
  Age: 80 Year
  Sex: Male

DRUGS (8)
  1. FLUDEX                             /00340101/ [Suspect]
     Dosage: DOSE: 1 DF
     Route: 048
     Dates: end: 20080821
  2. ZOCOR [Suspect]
     Dates: end: 20080821
  3. COZAAR [Suspect]
     Dosage: DOSE: 1 DF
     Route: 048
     Dates: end: 20080821
  4. JOSIR [Suspect]
     Dosage: DOSE: 1 DF
     Route: 048
     Dates: end: 20080821
  5. DIMETANE                           /00098602/ [Concomitant]
     Dates: start: 20080811, end: 20080818
  6. DAKTARIN                           /00310802/ [Concomitant]
     Dates: start: 20080811, end: 20080818
  7. ANTARENE [Concomitant]
     Dates: start: 20080811, end: 20080818
  8. CEFUROXIME [Concomitant]
     Dates: start: 20080701

REACTIONS (15)
  - ABNORMAL BEHAVIOUR [None]
  - BLOOD CULTURE POSITIVE [None]
  - BRONCHITIS [None]
  - CANDIDIASIS [None]
  - CARDIAC FAILURE [None]
  - CARDIOMEGALY [None]
  - DEEP VEIN THROMBOSIS [None]
  - HYPOTHERMIA [None]
  - HYPOXIA [None]
  - INAPPROPRIATE ANTIDIURETIC HORMONE SECRETION [None]
  - LUNG INFECTION [None]
  - METABOLIC ENCEPHALOPATHY [None]
  - PNEUMONIA [None]
  - PULMONARY FIBROSIS [None]
  - STAPHYLOCOCCAL INFECTION [None]
